FAERS Safety Report 24779195 (Version 1)
Quarter: 2024Q4

REPORT INFORMATION
  Report Type: Spontaneous
  Country: US (occurrence: None)
  Receive Date: 20241226
  Receipt Date: 20241226
  Transmission Date: 20250115
  Serious: Yes (Other)
  Sender: Public
  Company Number: None

PATIENT
  Age: 48 Year
  Sex: Female

DRUGS (7)
  1. BOTOX [Suspect]
     Active Substance: ONABOTULINUMTOXINA
     Indication: Migraine
     Dosage: FREQ: INJECT 155 UNITS IN THE MUSCLE INTO THE HEAD, NECK, AND SHOULDERS EVERY 3 MONTHS.
     Route: 030
     Dates: start: 20240710
  2. DEVICE [Suspect]
     Active Substance: DEVICE
  3. AMITRIPTYLINE [Concomitant]
     Active Substance: AMITRIPTYLINE
  4. CLONAZEPAM [Concomitant]
     Active Substance: CLONAZEPAM
  5. DOXYCYCLINE HYCLATE [Concomitant]
     Active Substance: DOXYCYCLINE HYCLATE
  6. FAMOTIDINE [Concomitant]
     Active Substance: FAMOTIDINE
  7. TIZANIDINE HYDROCHLORIDE [Concomitant]
     Active Substance: TIZANIDINE HYDROCHLORIDE

REACTIONS (2)
  - Device malfunction [None]
  - Pain [None]

NARRATIVE: CASE EVENT DATE: 20241015
